FAERS Safety Report 5876090-6 (Version None)
Quarter: 2008Q3

REPORT INFORMATION
  Report Type: 
  Country: None (occurrence: None)
  Receive Date: 20080905
  Receipt Date: 20080828
  Transmission Date: 20090109
  Serious: Yes (Other)
  Sender: FDA-Public Use
  Company Number: GB-1166777

PATIENT
  Age: 29 Year
  Sex: Female

DRUGS (4)
  1. TIMOLOL MALEATE [Suspect]
     Indication: GLAUCOMA
     Dosage: TOPICAL
     Route: 061
  2. BRIMONDINE TARTRATE (BRIMONIDINE TARTRATE) EYE DROPS, SOLUTION [Suspect]
     Indication: GLAUCOMA
     Dosage: TOPICAL
     Route: 061
  3. LATANOPROST [Suspect]
     Indication: GLAUCOMA
     Dosage: TOPICAL
     Route: 061
  4. INSULIN (INSULIN) [Concomitant]

REACTIONS (1)
  - DRUG INEFFECTIVE [None]
